FAERS Safety Report 5105223-4 (Version None)
Quarter: 2006Q3

REPORT INFORMATION
  Report Type: 
  Country: None (occurrence: None)
  Receive Date: 20060911
  Receipt Date: 20060830
  Transmission Date: 20061208
  Serious: Yes (Other)
  Sender: FDA-Public Use
  Company Number: 14732

PATIENT
  Age: 14 Day
  Sex: Female

DRUGS (4)
  1. CARBOPLATIN [Suspect]
     Indication: RETINOBLASTOMA BILATERAL
  2. CARBOPLATIN [Concomitant]
  3. VINCRISTINE [Concomitant]
  4. ETOPOSIDE [Concomitant]

REACTIONS (9)
  - ATROPHY [None]
  - CHORIORETINAL DISORDER [None]
  - DISORDER OF ORBIT [None]
  - DYSTROPHIC CALCIFICATION [None]
  - GLIOSIS [None]
  - NECROSIS [None]
  - NECROSIS ISCHAEMIC [None]
  - OPTIC NERVE DISORDER [None]
  - RETINAL NEOPLASM [None]
